FAERS Safety Report 5218757-9 (Version None)
Quarter: 2007Q1

REPORT INFORMATION
  Report Type: 
  Country: None (occurrence: None)
  Receive Date: 20070123
  Receipt Date: 20070109
  Transmission Date: 20070707
  Serious: Yes (Hospitalization)
  Sender: FDA-Public Use
  Company Number: 2006BI016258

PATIENT
  Age: 26 Year
  Sex: Female

DRUGS (7)
  1. NATALIZUMAB [Suspect]
     Indication: MULTIPLE SCLEROSIS
     Dosage: 300 MG;QM;IV
     Route: 042
     Dates: start: 20061030
  2. ORAL CONTRACEPTIVE NOS [Concomitant]
  3. CALCIUM SUPPLEMENT [Concomitant]
  4. POTASSIUM SUPPLEMENT [Concomitant]
  5. BACLOFEN [Concomitant]
  6. XANAX [Concomitant]
  7. TYLENOL [Concomitant]

REACTIONS (19)
  - ANTI-HBS ANTIBODY POSITIVE [None]
  - AUTOIMMUNE HEPATITIS [None]
  - CHOLANGITIS [None]
  - CHOLESTASIS [None]
  - DEHYDRATION [None]
  - GAIT DISTURBANCE [None]
  - HEPATIC FAILURE [None]
  - HEPATIC FIBROSIS [None]
  - HEPATIC NECROSIS [None]
  - HEPATIC STEATOSIS [None]
  - HEPATITIS ACUTE [None]
  - HEPATOCELLULAR DAMAGE [None]
  - HERPES SIMPLEX SEROLOGY POSITIVE [None]
  - INFREQUENT BOWEL MOVEMENTS [None]
  - INFUSION RELATED REACTION [None]
  - INTERNATIONAL NORMALISED RATIO INCREASED [None]
  - SUPRAVENTRICULAR TACHYCARDIA [None]
  - TACHYCARDIA [None]
  - VISION BLURRED [None]
